FAERS Safety Report 6083721-7 (Version None)
Quarter: 2009Q1

REPORT INFORMATION
  Report Type: 
  Country: None (occurrence: None)
  Receive Date: 20090217
  Receipt Date: 20090217
  Transmission Date: 20090719
  Serious: No
  Sender: FDA-Public Use
  Company Number: None

PATIENT
  Age: 32 Year
  Sex: Female

DRUGS (2)
  1. VISTARIL [Suspect]
     Indication: ABDOMINAL PAIN
  2. DONNATAL [Suspect]

REACTIONS (2)
  - DYSPNOEA [None]
  - RASH [None]
